FAERS Safety Report 7777103-7 (Version None)
Quarter: 2011Q3

REPORT INFORMATION
  Report Type: 
  Country: None (occurrence: None)
  Receive Date: 20110926
  Receipt Date: 20110920
  Transmission Date: 20111222
  Serious: Yes (Death)
  Sender: FDA-Public Use
  Company Number: JP-BRISTOL-MYERS SQUIBB COMPANY-16082521

PATIENT
  Age: 74 Year
  Sex: Male

DRUGS (1)
  1. MAXIPIME [Suspect]
     Dosage: 1G/BOTTLE INJ
     Dates: start: 20060201

REACTIONS (1)
  - INTERSTITIAL LUNG DISEASE [None]
